FAERS Safety Report 20210292 (Version 2)
Quarter: 2021Q4

REPORT INFORMATION
  Report Type: Spontaneous
  Country: JP (occurrence: JP)
  Receive Date: 20211221
  Receipt Date: 20211228
  Transmission Date: 20220303
  Serious: Yes (Hospitalization, Other)
  Sender: FDA-Public Use
  Company Number: JP-Accord-247466

PATIENT
  Age: 21 Year
  Sex: Female
  Weight: 66.6 kg

DRUGS (8)
  1. QUETIAPINE [Suspect]
     Active Substance: QUETIAPINE
     Indication: Schizophrenia
  2. CLOZAPINE [Suspect]
     Active Substance: CLOZAPINE
     Indication: Schizophrenia
     Dosage: 12.5MG, 25MG, 50MG, 75MG, 100MG, 125MG, 150MG, AND 175 MG TO 200 MG.
  3. OLANZAPINE [Suspect]
     Active Substance: OLANZAPINE
     Indication: Schizophrenia
  4. ETIZOLAM [Concomitant]
     Active Substance: ETIZOLAM
     Indication: Schizophrenia
  5. BIPERIDEN [Concomitant]
     Active Substance: BIPERIDEN
     Indication: Schizophrenia
  6. FLUNITRAZEPAM [Concomitant]
     Active Substance: FLUNITRAZEPAM
     Indication: Schizophrenia
  7. LITHIUM CARBONATE [Concomitant]
     Active Substance: LITHIUM CARBONATE
     Indication: Schizophrenia
     Dosage: INCREASED TO 800 MG/DAY
  8. ADENINE HYDROCHLORIDE [Concomitant]
     Dosage: 20 MG IN 24 HRS AND 60 MG IN 24 HRS

REACTIONS (4)
  - White blood cell count decreased [Recovering/Resolving]
  - Tremor [Recovered/Resolved]
  - Neutrophil count decreased [Recovering/Resolving]
  - Salivary hypersecretion [Recovered/Resolved]
